FAERS Safety Report 19994338 (Version 1)
Quarter: 2021Q4

REPORT INFORMATION
  Report Type: Spontaneous
  Country: NO (occurrence: NO)
  Receive Date: 20211025
  Receipt Date: 20211025
  Transmission Date: 20220303
  Serious: Yes (Hospitalization, Other)
  Sender: FDA-Public Use
  Company Number: None

PATIENT
  Age: 74 Year
  Sex: Male

DRUGS (1)
  1. OPDIVO [Suspect]
     Active Substance: NIVOLUMAB
     Indication: Metastatic malignant melanoma
     Dosage: RECEIVED 3 CURES WITH TWO WEEKS IN BETWEEN
     Route: 042
     Dates: start: 202106, end: 202106

REACTIONS (1)
  - Noninfective encephalitis [Unknown]

NARRATIVE: CASE EVENT DATE: 20211001
